FAERS Safety Report 4902024-4 (Version None)
Quarter: 2006Q1

REPORT INFORMATION
  Report Type: 
  Country: None (occurrence: None)
  Receive Date: 20060202
  Receipt Date: 20060118
  Transmission Date: 20060701
  Serious: Yes (Life-Threatening, Hospitalization)
  Sender: FDA-Public Use
  Company Number: 2005S1012191

PATIENT
  Age: 72 Year
  Sex: Male
  Weight: 101.1975 kg

DRUGS (9)
  1. FUROSEMIDE [Suspect]
     Indication: POLYURIA
     Dosage: 20 MG; PO
     Route: 048
     Dates: start: 20020101
  2. CARVEDILOL [Suspect]
     Indication: CARDIAC DISORDER
     Dosage: SEE IMAGE
     Dates: start: 20050806, end: 20050827
  3. CARVEDILOL [Suspect]
     Indication: CARDIAC DISORDER
     Dosage: SEE IMAGE
     Dates: start: 20050828, end: 20050901
  4. WARFARIN SODIUM [Suspect]
     Dosage: PO
     Route: 048
  5. AMIODARONE HCL [Suspect]
     Dosage: 200 MG; BID; PO
     Route: 048
  6. AMLODIPINE [Suspect]
     Dosage: 5 MG; PO
     Route: 048
  7. ATORVASTATIN CALCIUM [Suspect]
     Dosage: 20 MG; PO
     Route: 048
  8. LISINOPRIL [Suspect]
     Indication: CARDIAC DISORDER
     Dosage: 20 MG; PO
     Route: 048
     Dates: start: 20020101
  9. POTASSIUM SALT [Suspect]
     Dosage: 10 MEQ; ORAL
     Route: 048

REACTIONS (16)
  - ASTHENIA [None]
  - CARDIAC DISORDER [None]
  - CEREBRAL DISORDER [None]
  - DEPRESSED LEVEL OF CONSCIOUSNESS [None]
  - DIZZINESS [None]
  - DYSPNOEA [None]
  - EYE ROLLING [None]
  - FEELING ABNORMAL [None]
  - FOAMING AT MOUTH [None]
  - HEADACHE [None]
  - HEART RATE DECREASED [None]
  - LOSS OF CONSCIOUSNESS [None]
  - NAUSEA [None]
  - PALLOR [None]
  - SYNCOPE [None]
  - VERTIGO [None]
